FAERS Safety Report 17184392 (Version 1)
Quarter: 2019Q4

REPORT INFORMATION
  Report Type: Spontaneous
  Country: US (occurrence: US)
  Receive Date: 20191219
  Receipt Date: 20191219
  Transmission Date: 20200122
  Serious: Yes (Life-Threatening, Hospitalization)
  Sender: FDA-Public Use
  Company Number: None

PATIENT
  Age: 19 Year
  Sex: Female
  Weight: 70.3 kg

DRUGS (2)
  1. CLOZARIL [Suspect]
     Active Substance: CLOZAPINE
  2. LAMOTRIGINE. [Suspect]
     Active Substance: LAMOTRIGINE

REACTIONS (1)
  - Drug-induced liver injury [None]

NARRATIVE: CASE EVENT DATE: 20190917
